FAERS Safety Report 25104939 (Version 1)
Quarter: 2025Q1

REPORT INFORMATION
  Report Type: Spontaneous
  Country: GB (occurrence: GB)
  Receive Date: 20250321
  Receipt Date: 20250321
  Transmission Date: 20250409
  Serious: Yes (Other)
  Sender: ELI LILLY AND COMPANY
  Company Number: None

PATIENT
  Age: 34 Year
  Sex: Female
  Weight: 60 kg

DRUGS (2)
  1. CYMBALTA [Suspect]
     Active Substance: DULOXETINE HYDROCHLORIDE
     Indication: Product used for unknown indication
     Dosage: 30 MG, EACH MORNING
     Route: 065
     Dates: start: 20250309, end: 20250310
  2. PHENERGAN [Concomitant]
     Active Substance: PROMETHAZINE HYDROCHLORIDE
     Indication: Adverse drug reaction
     Route: 065
     Dates: start: 20250102

REACTIONS (14)
  - Medication error [Unknown]
  - Vomiting [Recovering/Resolving]
  - Sympathomimetic effect [Unknown]
  - Feeding disorder [Unknown]
  - Dyspnoea [Recovered/Resolved]
  - Dry mouth [Unknown]
  - Tremor [Recovered/Resolved]
  - Restlessness [Unknown]
  - Akathisia [Unknown]
  - Feeling of body temperature change [Unknown]
  - Hyperhidrosis [Unknown]
  - Malaise [Unknown]
  - Presyncope [Recovered/Resolved]
  - Anxiety [Unknown]

NARRATIVE: CASE EVENT DATE: 20250310
